FAERS Safety Report 12851328 (Version 1)
Quarter: 2016Q4

REPORT INFORMATION
  Report Type: Spontaneous
  Country: AU (occurrence: AU)
  Receive Date: 20161016
  Receipt Date: 20161016
  Transmission Date: 20170207
  Serious: Yes (Other)
  Sender: FDA-Public Use
  Company Number: AU-AMGEN-AUSSP2016138424

PATIENT
  Age: 30 Year
  Sex: Male

DRUGS (1)
  1. ARANESP [Suspect]
     Active Substance: DARBEPOETIN ALFA
     Indication: ANAEMIA
     Dosage: 100 MUG, QWK
     Route: 065
     Dates: start: 2015

REACTIONS (3)
  - Dialysis [Unknown]
  - Drug ineffective [Not Recovered/Not Resolved]
  - Renal transplant [Unknown]

NARRATIVE: CASE EVENT DATE: 201603
